FAERS Safety Report 22077417 (Version 10)
Quarter: 2024Q3

REPORT INFORMATION
  Report Type: Report from Study
  Country: AR (occurrence: AR)
  Receive Date: 20230309
  Receipt Date: 20240902
  Transmission Date: 20241017
  Serious: Yes (Other)
  Sender: NOVARTIS
  Company Number: AR-002147023-NVSC2022AR212866

PATIENT
  Age: 56 Year
  Sex: Female

DRUGS (5)
  1. KISQALI [Suspect]
     Active Substance: RIBOCICLIB
     Indication: Breast cancer metastatic
     Dosage: 200 MG, TID
     Route: 048
     Dates: start: 20220129
  2. KISQALI [Suspect]
     Active Substance: RIBOCICLIB
     Dosage: 600 MG, QD
     Route: 048
     Dates: start: 20230129
  3. KISQALI [Suspect]
     Active Substance: RIBOCICLIB
     Dosage: 600 MG, QD
     Route: 048
  4. KISQALI [Suspect]
     Active Substance: RIBOCICLIB
     Dosage: 600 MG (ONCE MONTHLY)
     Route: 048
  5. FULVESTRANT [Suspect]
     Active Substance: FULVESTRANT
     Indication: Breast cancer metastatic
     Dosage: 250 MG
     Route: 042
     Dates: start: 20220129

REACTIONS (25)
  - Peripheral venous disease [Unknown]
  - Peripheral vascular disorder [Unknown]
  - Allergic cough [Unknown]
  - Breast cancer metastatic [Unknown]
  - Malignant neoplasm progression [Unknown]
  - Humerus fracture [Unknown]
  - Limb injury [Unknown]
  - Pain in extremity [Unknown]
  - Peripheral swelling [Unknown]
  - Dysphonia [Unknown]
  - Somnolence [Unknown]
  - Inflammation [Unknown]
  - Scratch [Unknown]
  - Headache [Unknown]
  - Fatigue [Unknown]
  - Pruritus [Unknown]
  - Asthenia [Unknown]
  - Weight increased [Unknown]
  - Overweight [Unknown]
  - Drug hypersensitivity [Unknown]
  - Movement disorder [Unknown]
  - Limb discomfort [Unknown]
  - Memory impairment [Unknown]
  - Osteoporosis [Unknown]
  - Inappropriate schedule of product administration [Unknown]

NARRATIVE: CASE EVENT DATE: 20220801
